FAERS Safety Report 20543855 (Version 1)
Quarter: 2022Q1

REPORT INFORMATION
  Report Type: Spontaneous
  Country: IT (occurrence: IT)
  Receive Date: 20220303
  Receipt Date: 20220303
  Transmission Date: 20220423
  Serious: Yes (Other)
  Sender: FDA-Public Use
  Company Number: IT-SUN PHARMACEUTICAL INDUSTRIES LTD-2022RR-328548

PATIENT
  Age: 58 Year
  Sex: Female

DRUGS (1)
  1. ALPRAZOLAM [Suspect]
     Active Substance: ALPRAZOLAM
     Indication: Drug abuse
     Dosage: 10 MILLILITER, IN TOTAL
     Route: 048
     Dates: start: 20211202, end: 20211202

REACTIONS (3)
  - Drug abuse [Unknown]
  - Bradykinesia [Unknown]
  - Sopor [Unknown]

NARRATIVE: CASE EVENT DATE: 20211202
